FAERS Safety Report 8683120 (Version 2)
Quarter: 2012Q4

REPORT INFORMATION
  Report Type: 
  Country: FR (occurrence: FR)
  Receive Date: 20120725
  Receipt Date: 20121214
  Transmission Date: 20130627
  Serious: Yes (Hospitalization, Other)
  Sender: FDA-Public Use
  Company Number: FR-ABBOTT-12P-056-0958548-00

PATIENT
  Age: 72 None
  Sex: Male

DRUGS (9)
  1. ZECLAR [Suspect]
     Indication: MYCOBACTERIUM AVIUM COMPLEX INFECTION
     Route: 048
     Dates: start: 201111, end: 20120503
  2. ZECLAR [Suspect]
     Dates: start: 20120620
  3. ANSATIPINE [Suspect]
     Indication: MYCOBACTERIUM AVIUM COMPLEX INFECTION
     Route: 048
     Dates: start: 201111, end: 20120503
  4. IZILOX [Suspect]
     Indication: MYCOBACTERIUM AVIUM COMPLEX INFECTION
     Route: 048
     Dates: start: 201111, end: 20120503
  5. IZILOX [Suspect]
     Dates: start: 20120620
  6. CORTANCYL [Concomitant]
     Indication: PRODUCT USED FOR UNKNOWN INDICATION
     Route: 048
  7. XATRAL [Concomitant]
     Indication: PRODUCT USED FOR UNKNOWN INDICATION
     Route: 048
  8. CACIT D3 [Concomitant]
     Indication: PRODUCT USED FOR UNKNOWN INDICATION
     Route: 048
  9. MUCOMYST [Concomitant]
     Indication: PRODUCT USED FOR UNKNOWN INDICATION
     Route: 048

REACTIONS (6)
  - Uveitis [Recovered/Resolved]
  - Rash papular [Recovering/Resolving]
  - Prurigo [Recovering/Resolving]
  - Yellow skin [Recovering/Resolving]
  - Prurigo [Recovering/Resolving]
  - Urticaria [Recovering/Resolving]
